FAERS Safety Report 15941984 (Version 1)
Quarter: 2019Q1

REPORT INFORMATION
  Report Type: Spontaneous
  Country: FR (occurrence: FR)
  Receive Date: 20190209
  Receipt Date: 20190209
  Transmission Date: 20190417
  Serious: Yes (Hospitalization)
  Sender: FDA-Public Use
  Company Number: FR-TAKEDA-2019TUS005530

PATIENT
  Age: 69 Year
  Sex: Male
  Weight: 104 kg

DRUGS (2)
  1. ADENURIC [Suspect]
     Active Substance: FEBUXOSTAT
     Indication: GOUT
     Dosage: UNK
     Route: 048
     Dates: start: 20190108, end: 20190111
  2. CORTANCYL [Suspect]
     Active Substance: PREDNISONE
     Indication: GOUT
     Dosage: UNK
     Route: 048
     Dates: start: 20181231

REACTIONS (2)
  - Hyperkalaemia [Recovering/Resolving]
  - Atrial flutter [Recovering/Resolving]

NARRATIVE: CASE EVENT DATE: 20190111
